FAERS Safety Report 10732568 (Version 2)
Quarter: 2015Q3

REPORT INFORMATION
  Report Type: Spontaneous
  Country: BR (occurrence: BR)
  Receive Date: 20150123
  Receipt Date: 20150819
  Transmission Date: 20151125
  Serious: Yes (Life-Threatening, Hospitalization, Other)
  Sender: FDA-Public Use
  Company Number: BR-ABBVIE-15P-020-1337121-00

PATIENT
  Age: 21 Year
  Sex: Male
  Weight: 89 kg

DRUGS (9)
  1. DEPAKOTE ER [Suspect]
     Active Substance: DIVALPROEX SODIUM
     Indication: PRODUCT USED FOR UNKNOWN INDICATION
     Route: 065
     Dates: start: 2014, end: 201505
  2. CLONAZEPAM. [Concomitant]
     Active Substance: CLONAZEPAM
     Indication: SEDATIVE THERAPY
     Dosage: AT NIGHT
     Route: 048
     Dates: start: 20141013
  3. DEPAKENE [Suspect]
     Active Substance: VALPROIC ACID
     Indication: BIPOLAR DISORDER
     Route: 065
     Dates: start: 201401
  4. RISPERIDONE. [Concomitant]
     Active Substance: RISPERIDONE
     Indication: DEPRESSION
     Dosage: 4 MG; AT NIGHT
     Route: 048
  5. CLONAZEPAM. [Concomitant]
     Active Substance: CLONAZEPAM
     Indication: SEDATIVE THERAPY
  6. DEPAKENE [Suspect]
     Active Substance: VALPROIC ACID
     Route: 065
     Dates: start: 201505
  7. SERTRALINE HYDROCHLORIDE. [Concomitant]
     Active Substance: SERTRALINE HYDROCHLORIDE
     Indication: ANXIETY
     Route: 048
  8. AMITRIPTYLINE [Concomitant]
     Active Substance: AMITRIPTYLINE
     Indication: SEDATIVE THERAPY
     Route: 048
     Dates: start: 20141014
  9. CINETOL [Concomitant]
     Indication: TREMOR
     Route: 048

REACTIONS (4)
  - Headache [Recovered/Resolved]
  - Depression [Recovering/Resolving]
  - Suicide attempt [Recovered/Resolved]
  - Off label use [Recovered/Resolved]

NARRATIVE: CASE EVENT DATE: 2014
